FAERS Safety Report 6380948-1 (Version None)
Quarter: 2009Q3

REPORT INFORMATION
  Report Type: 
  Country: None (occurrence: None)
  Receive Date: 20090929
  Receipt Date: 20090918
  Transmission Date: 20100115
  Serious: Yes (Death)
  Sender: FDA-Public Use
  Company Number: US-TYCO HEALTHCARE/MALLINCKRODT-T200901766

PATIENT
  Sex: Male

DRUGS (1)
  1. METHADOSE [Suspect]
     Dosage: SMALL AMOUNT
     Dates: start: 20090901, end: 20090901

REACTIONS (2)
  - DEATH [None]
  - DRUG DIVERSION [None]
